FAERS Safety Report 20209533 (Version 2)
Quarter: 2022Q2

REPORT INFORMATION
  Report Type: Spontaneous
  Country: RU (occurrence: RU)
  Receive Date: 20211221
  Receipt Date: 20220422
  Transmission Date: 20220721
  Serious: Yes (Other)
  Sender: FDA-Public Use
  Company Number: RU-SA-2021SA414629

PATIENT
  Age: 19 Year
  Sex: Male

DRUGS (10)
  1. ELOCTA [Suspect]
     Active Substance: EFMOROCTOCOG ALFA
     Indication: Factor VIII deficiency
     Dosage: 2000 IU, BIW
     Route: 042
     Dates: start: 20210602
  2. ELOCTA [Suspect]
     Active Substance: EFMOROCTOCOG ALFA
     Indication: Factor VIII deficiency
     Dosage: 2000 IU, BIW
     Route: 042
     Dates: start: 20210602
  3. ELOCTA [Suspect]
     Active Substance: EFMOROCTOCOG ALFA
     Dosage: 2800 IU
     Dates: start: 20211006
  4. ELOCTA [Suspect]
     Active Substance: EFMOROCTOCOG ALFA
     Dosage: 2800 IU
     Dates: start: 20211006
  5. ELOCTA [Suspect]
     Active Substance: EFMOROCTOCOG ALFA
     Dosage: 2000 IU
     Dates: start: 20211007, end: 20211008
  6. ELOCTA [Suspect]
     Active Substance: EFMOROCTOCOG ALFA
     Dosage: 2000 IU
     Dates: start: 20211007, end: 20211008
  7. ELOCTA [Suspect]
     Active Substance: EFMOROCTOCOG ALFA
     Dosage: 2800 IU
     Dates: start: 20211031
  8. ELOCTA [Suspect]
     Active Substance: EFMOROCTOCOG ALFA
     Dosage: 2800 IU
     Dates: start: 20211031
  9. ELOCTA [Suspect]
     Active Substance: EFMOROCTOCOG ALFA
     Dosage: 2000 IU
     Dates: start: 20211101
  10. ELOCTA [Suspect]
     Active Substance: EFMOROCTOCOG ALFA
     Dosage: 2000 IU
     Dates: start: 20211101

REACTIONS (1)
  - Haemarthrosis [Recovered/Resolved]

NARRATIVE: CASE EVENT DATE: 20211006
